FAERS Safety Report 5916326-6 (Version None)
Quarter: 2008Q4

REPORT INFORMATION
  Report Type: 
  Country: None (occurrence: None)
  Receive Date: 20081013
  Receipt Date: 20081008
  Transmission Date: 20090506
  Serious: Yes (Death, Other)
  Sender: FDA-Public Use
  Company Number: PHHY2008JP16617

PATIENT
  Sex: Male

DRUGS (7)
  1. SANDOSTATIN [Suspect]
     Indication: GASTROINTESTINAL OBSTRUCTION
     Dosage: 100 UG DILUTED TO 250 ML
     Route: 058
     Dates: start: 20080729, end: 20080729
  2. AMINIC [Concomitant]
     Dosage: 2 DF, UNK
     Route: 042
     Dates: start: 20080701, end: 20080731
  3. ELEMENMIC [Concomitant]
     Dosage: 1 DF, UNK
     Route: 042
     Dates: start: 20080701, end: 20080731
  4. MORPHINE HCL ELIXIR [Concomitant]
     Indication: PAIN
     Dosage: 700 MG
     Route: 042
     Dates: start: 20080415, end: 20080804
  5. MIDAZOLAM HCL [Concomitant]
     Dosage: 2 DF, UNK
     Route: 042
     Dates: start: 20080701, end: 20080731
  6. HICALIQ [Concomitant]
     Dosage: 2 DF, UNK
     Route: 042
     Dates: start: 20080701, end: 20080731
  7. VITAJECT [Concomitant]
     Dosage: 1 DF, UNK
     Route: 042
     Dates: start: 20080701, end: 20080731

REACTIONS (19)
  - ALANINE AMINOTRANSFERASE INCREASED [None]
  - ASPARTATE AMINOTRANSFERASE INCREASED [None]
  - BLOOD ALKALINE PHOSPHATASE INCREASED [None]
  - BLOOD GLUCOSE INCREASED [None]
  - C-REACTIVE PROTEIN INCREASED [None]
  - GAMMA-GLUTAMYLTRANSFERASE INCREASED [None]
  - GASTRIC CANCER [None]
  - HAEMATOCRIT DECREASED [None]
  - HAEMOGLOBIN DECREASED [None]
  - HYPERSENSITIVITY [None]
  - MEAN CELL HAEMOGLOBIN CONCENTRATION DECREASED [None]
  - MEAN CELL HAEMOGLOBIN DECREASED [None]
  - MEAN CELL VOLUME DECREASED [None]
  - OEDEMA [None]
  - PLATELET COUNT INCREASED [None]
  - RASH GENERALISED [None]
  - SHOCK [None]
  - URTICARIA [None]
  - WHITE BLOOD CELL COUNT INCREASED [None]
